FAERS Safety Report 11345126 (Version 1)
Quarter: 2015Q3

REPORT INFORMATION
  Report Type: Report from Study
  Country: BR (occurrence: BR)
  Receive Date: 20150806
  Receipt Date: 20150806
  Transmission Date: 20151125
  Serious: Yes (Other)
  Sender: FDA-Public Use
  Company Number: BR-ALEXION-A201502896

PATIENT

DRUGS (1)
  1. SOLIRIS [Suspect]
     Active Substance: ECULIZUMAB
     Indication: HAEMOLYTIC URAEMIC SYNDROME
     Dosage: 900 MG, QW
     Route: 042
     Dates: start: 20150718

REACTIONS (25)
  - Eye irritation [Unknown]
  - Haematocrit abnormal [Unknown]
  - Reticulocyte count decreased [Unknown]
  - Nasal congestion [Unknown]
  - Blood creatinine abnormal [Unknown]
  - Sneezing [Unknown]
  - Hypertension [Unknown]
  - Blood potassium abnormal [Unknown]
  - Chills [Recovered/Resolved]
  - Haematuria [Unknown]
  - Blood lactate dehydrogenase abnormal [Unknown]
  - Bilirubin conjugated abnormal [Unknown]
  - Blood bilirubin abnormal [Unknown]
  - Blood sodium abnormal [Unknown]
  - Rhinorrhoea [Unknown]
  - Haemoglobin abnormal [Unknown]
  - Blood urea abnormal [Unknown]
  - Blood albumin abnormal [Unknown]
  - Polymerase chain reaction positive [Unknown]
  - Hyperhidrosis [Recovered/Resolved]
  - Nausea [Not Recovered/Not Resolved]
  - Tremor [Recovered/Resolved]
  - Calculus urinary [Unknown]
  - White blood cell disorder [Unknown]
  - Nasopharyngitis [Unknown]

NARRATIVE: CASE EVENT DATE: 20150723
